FAERS Safety Report 5827074-5 (Version None)
Quarter: 2008Q3

REPORT INFORMATION
  Report Type: 
  Country: None (occurrence: None)
  Receive Date: 20080730
  Receipt Date: 20080715
  Transmission Date: 20090109
  Serious: Yes (Other)
  Sender: FDA-Public Use
  Company Number: B0529716A

PATIENT
  Sex: Male

DRUGS (11)
  1. ZIDOVUDINE [Suspect]
     Indication: HIV INFECTION
     Dates: start: 19930101
  2. LAMIVUDINE [Suspect]
     Indication: HIV INFECTION
     Dates: start: 19970101, end: 20000101
  3. ZALCITABINE [Suspect]
     Indication: HIV INFECTION
     Dates: start: 19960101
  4. ABACAVIR [Suspect]
     Indication: HIV INFECTION
  5. STAVUDINE [Suspect]
     Indication: HIV INFECTION
     Dates: start: 19970101, end: 20000101
  6. INDINIVIR SULFATE [Suspect]
     Indication: HIV INFECTION
     Dates: start: 19970101, end: 20000101
  7. LOPINAVIR AND RITONAVIR [Suspect]
     Indication: HIV INFECTION
     Dates: start: 20020101
  8. PROLEUKIN [Suspect]
     Indication: HIV INFECTION
  9. DIDANOSINE [Suspect]
     Indication: HIV INFECTION
     Dates: start: 19940101, end: 19950101
  10. DARUNAVIR [Suspect]
  11. TIPRANAVIR + RITONAVIR [Suspect]

REACTIONS (12)
  - DRUG TOXICITY [None]
  - DYSLIPIDAEMIA [None]
  - HYPERTENSION [None]
  - HYPERTROPHY [None]
  - HYPOSTHENURIA [None]
  - LEUKOCYTURIA [None]
  - LIPOATROPHY [None]
  - LIPODYSTROPHY ACQUIRED [None]
  - MICROALBUMINURIA [None]
  - PROTEINURIA [None]
  - RENAL IMPAIRMENT [None]
  - RENAL TUBULAR DISORDER [None]
